FAERS Safety Report 10233999 (Version 1)
Quarter: 2014Q2

REPORT INFORMATION
  Report Type: Spontaneous
  Country: US (occurrence: US)
  Receive Date: 20140612
  Receipt Date: 20140612
  Transmission Date: 20141212
  Serious: No
  Sender: FDA-Public Use
  Company Number: US-BAYER-2014-078158

PATIENT
  Age: 77 Year
  Sex: Male

DRUGS (1)
  1. XOFIGO [Suspect]
     Indication: PROSTATE CANCER
     Dosage: UNK
     Route: 042

REACTIONS (1)
  - Prostatic specific antigen increased [None]
